FAERS Safety Report 9887991 (Version 2)
Quarter: 2014Q2

REPORT INFORMATION
  Report Type: Spontaneous
  Country: SE (occurrence: SE)
  Receive Date: 20140211
  Receipt Date: 20140612
  Transmission Date: 20141212
  Serious: Yes (Other)
  Sender: FDA-Public Use
  Company Number: SE-SA-2014SA016063

PATIENT
  Age: 87 Year
  Sex: Female

DRUGS (9)
  1. MULTAQ [Suspect]
     Indication: PRODUCT USED FOR UNKNOWN INDICATION
     Route: 065
     Dates: start: 201305, end: 201309
  2. MULTAQ [Suspect]
     Indication: PRODUCT USED FOR UNKNOWN INDICATION
     Route: 065
     Dates: start: 201309, end: 201311
  3. HUMALOG [Concomitant]
  4. LANTUS [Concomitant]
  5. CALCICHEW-D3 [Concomitant]
  6. WARAN [Concomitant]
  7. ATENOLOL [Concomitant]
  8. PREDNISOLONE [Concomitant]
  9. ALENDRONIC ACID [Concomitant]

REACTIONS (1)
  - Renal failure acute [Unknown]
